FAERS Safety Report 6480731-2 (Version None)
Quarter: 2009Q4

REPORT INFORMATION
  Report Type: 
  Country: None (occurrence: None)
  Receive Date: 20091208
  Receipt Date: 20091123
  Transmission Date: 20100525
  Serious: Yes (Hospitalization)
  Sender: FDA-Public Use
  Company Number: US-SANOFI-AVENTIS-2009SA005590

PATIENT
  Age: 27 Year
  Sex: Female

DRUGS (1)
  1. HYDROXYCHLOROQUINE SULFATE [Suspect]
     Route: 065

REACTIONS (3)
  - ODYNOPHAGIA [None]
  - OESOPHAGEAL ULCER [None]
  - OESOPHAGITIS [None]
